FAERS Safety Report 18482199 (Version 1)
Quarter: 2020Q4

REPORT INFORMATION
  Report Type: Spontaneous
  Country: US (occurrence: US)
  Receive Date: 20201109
  Receipt Date: 20201109
  Transmission Date: 20210114
  Serious: No
  Sender: FDA-Public Use
  Company Number: US-FOUNDATIONCONSUMERHC-2020-US-013712

PATIENT
  Age: 49 Year
  Sex: Female
  Weight: 55.34 kg

DRUGS (6)
  1. MONOLAURIN [Concomitant]
  2. PLAN B ONE-STEP [Suspect]
     Active Substance: LEVONORGESTREL
     Indication: POST COITAL CONTRACEPTION
     Dosage: 1.5MG X1 DOSE
     Route: 048
     Dates: start: 20200628, end: 20200628
  3. VALIUM [Concomitant]
     Active Substance: DIAZEPAM
     Dosage: 4MG IN AM AND IN AFTERNOON
  4. UNSPECIFIED VITAMINS [Concomitant]
     Active Substance: VITAMINS
  5. CRANBERRY. [Concomitant]
     Active Substance: CRANBERRY
  6. CINNAMON. [Concomitant]
     Active Substance: CINNAMON

REACTIONS (2)
  - Menstruation delayed [Not Recovered/Not Resolved]
  - Dysmenorrhoea [Recovered/Resolved]

NARRATIVE: CASE EVENT DATE: 20200628
